FAERS Safety Report 9378645 (Version 1)
Quarter: 2013Q2

REPORT INFORMATION
  Report Type: Spontaneous
  Country: GR (occurrence: None)
  Receive Date: 20130626
  Receipt Date: 20130626
  Transmission Date: 20140414
  Serious: Yes (Hospitalization)
  Sender: FDA-Public Use
  Company Number: SYM-2013-05018

PATIENT
  Age: 20 Year
  Sex: 0

DRUGS (4)
  1. FLUOROURACIL (FLUOROURACIL)(FLUOROURACIL) [Suspect]
     Indication: OESOPHAGEAL ADENOCARCINOMA
  2. TRASTUZUMAB [Suspect]
     Indication: OESOPHAGEAL ADENOCARCINOMA
  3. DOCETAXEL (DOCETAXEL)(DOCETAXEL) [Concomitant]
  4. CISPLATIN (CISPLATIN) (CISPLATIN) [Concomitant]

REACTIONS (7)
  - Cardiotoxicity [None]
  - Headache [None]
  - Arthralgia [None]
  - Dyspepsia [None]
  - Hypoaesthesia [None]
  - Abdominal pain upper [None]
  - Nausea [None]
